FAERS Safety Report 8535467 (Version 2)
Quarter: 2012Q4

REPORT INFORMATION
  Report Type: 
  Country: US (occurrence: US)
  Receive Date: 20120430
  Receipt Date: 20121016
  Transmission Date: 20130627
  Serious: Yes (Hospitalization)
  Sender: FDA-Public Use
  Company Number: US-BAYER-2012-038967

PATIENT
  Age: 44 Year
  Sex: Female
  Weight: 95 kg

DRUGS (12)
  1. YAZ [Suspect]
     Indication: CONTRACEPTION
     Dosage: UNK
     Route: 048
     Dates: start: 200609, end: 201201
  2. YAZ [Suspect]
     Indication: ENDOMETRIOSIS
     Dosage: UNK
     Route: 048
     Dates: start: 201201, end: 201203
  3. CYMBALTA [Concomitant]
  4. AMLODIPINE [Concomitant]
  5. IMITREX [Concomitant]
  6. INDOMETHACIN [Concomitant]
  7. REQUIP [Concomitant]
  8. MELOXICAM [Concomitant]
  9. ROPINIROLE HYDROCHLORIDE [Concomitant]
  10. ENDOCET [Concomitant]
  11. LEVAQUIN [Concomitant]
  12. DULOXETINE [Concomitant]

REACTIONS (13)
  - Colitis ischaemic [None]
  - Abdominal pain [None]
  - Abdominal pain upper [None]
  - Pain [None]
  - Diarrhoea haemorrhagic [None]
  - Fatigue [None]
  - Decreased appetite [None]
  - Large intestine polyp [None]
  - Colitis ischaemic [None]
  - Colitis [None]
  - Diarrhoea haemorrhagic [None]
  - Abdominal pain lower [None]
  - Haemorrhoids [None]
